FAERS Safety Report 11072974 (Version 2)
Quarter: 2015Q2

REPORT INFORMATION
  Report Type: Spontaneous
  Country: CN (occurrence: CN)
  Receive Date: 20150428
  Receipt Date: 20150508
  Transmission Date: 20150821
  Serious: Yes (Other)
  Sender: FDA-Public Use
  Company Number: CN-BAYER-2015-140924

PATIENT
  Sex: Male

DRUGS (1)
  1. NEXAVAR [Suspect]
     Active Substance: SORAFENIB
     Indication: HEPATIC CANCER
     Dosage: UNK
     Dates: start: 20150320, end: 20150402

REACTIONS (9)
  - Swelling [Recovering/Resolving]
  - Palmar-plantar erythrodysaesthesia syndrome [Recovering/Resolving]
  - Infected dermal cyst [Recovering/Resolving]
  - Skin fissures [Recovering/Resolving]
  - Pain [Recovering/Resolving]
  - Erythema [Recovering/Resolving]
  - Blister [Recovering/Resolving]
  - Scab [Recovering/Resolving]
  - Vitamin B1 deficiency [Recovering/Resolving]

NARRATIVE: CASE EVENT DATE: 20150328
